FAERS Safety Report 6128531-7 (Version None)
Quarter: 2009Q1

REPORT INFORMATION
  Report Type: 
  Country: None (occurrence: None)
  Receive Date: 20090323
  Receipt Date: 20090309
  Transmission Date: 20090719
  Serious: Yes (Congenital Anomaly)
  Sender: FDA-Public Use
  Company Number: FR-JNJFOC-20090305525

PATIENT

DRUGS (3)
  1. NIZORAL [Suspect]
     Indication: DRUG EXPOSURE DURING PREGNANCY
  2. ACTRAPID HM [Concomitant]
     Indication: DRUG EXPOSURE DURING PREGNANCY
  3. PROTOPHASE [Concomitant]
     Indication: DRUG EXPOSURE DURING PREGNANCY

REACTIONS (1)
  - MULTIPLE CONGENITAL ABNORMALITIES [None]
